FAERS Safety Report 11444420 (Version 3)
Quarter: 2015Q4

REPORT INFORMATION
  Report Type: Spontaneous
  Country: GB (occurrence: GB)
  Receive Date: 20150902
  Receipt Date: 20151005
  Transmission Date: 20160304
  Serious: Yes (Other)
  Sender: FDA-Public Use
  Company Number: GB-ROCHE-1628480

PATIENT
  Sex: Female

DRUGS (1)
  1. TRASTUZUMAB [Suspect]
     Active Substance: TRASTUZUMAB
     Indication: PRODUCT USED FOR UNKNOWN INDICATION
     Dosage: CYCLE 7
     Route: 058

REACTIONS (9)
  - Blood pressure increased [Unknown]
  - Pallor [Unknown]
  - Chest pain [Unknown]
  - Injection site erythema [Unknown]
  - Atrial fibrillation [Unknown]
  - Dyspnoea [Unknown]
  - Painful respiration [Unknown]
  - Hyperhidrosis [Unknown]
  - Malaise [Not Recovered/Not Resolved]
